FAERS Safety Report 9158660 (Version 1)
Quarter: 2013Q1

REPORT INFORMATION
  Report Type: Spontaneous
  Country: DE (occurrence: DE)
  Receive Date: 20130312
  Receipt Date: 20130312
  Transmission Date: 20140127
  Serious: Yes (Other)
  Sender: FDA-Public Use
  Company Number: DE-ELI_LILLY_AND_COMPANY-DE201303000062

PATIENT
  Sex: Female

DRUGS (11)
  1. FORSTEO [Suspect]
     Indication: OSTEOPOROSIS
     Dosage: UNK, QD
     Route: 058
     Dates: start: 20111128
  2. CALCIUM VITAMIN D [Concomitant]
     Dosage: UNK, UNKNOWN
     Route: 065
  3. MORPHINE [Concomitant]
     Dosage: UNK, UNKNOWN
     Route: 065
  4. TARGIN [Concomitant]
     Dosage: UNK, UNKNOWN
     Route: 065
  5. TORASEMID [Concomitant]
     Dosage: 10 MG, BID
     Route: 065
  6. CANDESARTAN [Concomitant]
     Dosage: UNK, UNKNOWN
     Route: 065
  7. EUTHYROX [Concomitant]
     Dosage: UNK, UNKNOWN
     Route: 065
  8. RESTEX [Concomitant]
     Dosage: UNK, UNKNOWN
     Route: 065
  9. MADOPAR DEPOT [Concomitant]
     Dosage: UNK, UNKNOWN
     Route: 065
  10. PANTOZOL [Concomitant]
     Dosage: UNK, UNKNOWN
     Route: 065
  11. AMLODIPIN                          /00972401/ [Concomitant]
     Dosage: UNK, UNKNOWN
     Route: 065

REACTIONS (2)
  - Pulmonary oedema [Not Recovered/Not Resolved]
  - Coccydynia [Not Recovered/Not Resolved]
